FAERS Safety Report 23015013 (Version 1)
Quarter: 2023Q4

REPORT INFORMATION
  Report Type: Spontaneous
  Country: US (occurrence: US)
  Receive Date: 20231002
  Receipt Date: 20231002
  Transmission Date: 20240110
  Serious: Yes (Other)
  Sender: FDA-Public Use
  Company Number: US-TEVA-2023-US-2930292

PATIENT
  Age: 75 Year
  Sex: Female

DRUGS (1)
  1. MUPIROCIN [Suspect]
     Active Substance: MUPIROCIN
     Indication: Product used for unknown indication
     Dosage: 2 PERCENT
     Route: 065

REACTIONS (3)
  - Cystitis [Unknown]
  - Product prescribing issue [Unknown]
  - Intercepted product prescribing error [Unknown]
